FAERS Safety Report 7803581-0 (Version None)
Quarter: 2011Q4

REPORT INFORMATION
  Report Type: 
  Country: None (occurrence: None)
  Receive Date: 20111009
  Receipt Date: 20110926
  Transmission Date: 20120403
  Serious: Yes (Hospitalization)
  Sender: FDA-Public Use
  Company Number: US-ELI_LILLY_AND_COMPANY-US201107006235

PATIENT
  Sex: Female
  Weight: 86 kg

DRUGS (11)
  1. VITAMIN D [Concomitant]
  2. ASPIRIN [Concomitant]
  3. CELEBREX [Concomitant]
  4. ADVAIR DISKUS 100/50 [Concomitant]
  5. LOVAZA [Concomitant]
  6. FERROUS SULFATE TAB [Concomitant]
  7. CELEXA [Concomitant]
  8. COLACE [Concomitant]
  9. HIDROCLOROTIAZIDA [Concomitant]
  10. FORTEO [Suspect]
     Indication: OSTEOPOROSIS
     Dosage: UNK, UNK
  11. MIRALAX [Concomitant]

REACTIONS (2)
  - INJECTION SITE HAEMATOMA [None]
  - FRACTURE NONUNION [None]
